FAERS Safety Report 13182868 (Version 9)
Quarter: 2017Q2

REPORT INFORMATION
  Report Type: Report from Study
  Country: US (occurrence: US)
  Receive Date: 20170203
  Receipt Date: 20170630
  Transmission Date: 20170830
  Serious: Yes (Hospitalization, Other)
  Sender: FDA-Public Use
  Company Number: US-PFIZER INC-2017038449

PATIENT
  Age: 61 Year
  Sex: Female

DRUGS (2)
  1. FASLODEX [Concomitant]
     Active Substance: FULVESTRANT
     Dosage: UNK
  2. IBRANCE [Suspect]
     Active Substance: PALBOCICLIB
     Indication: BREAST CANCER
     Dosage: 125 MG, DAILY
     Route: 048
     Dates: start: 20170124, end: 20170227

REACTIONS (7)
  - Lymphadenopathy [Unknown]
  - Epistaxis [Unknown]
  - Dyspnoea [Unknown]
  - Diarrhoea [Unknown]
  - Pulmonary oedema [Unknown]
  - Fatigue [Unknown]
  - Leukopenia [Unknown]

NARRATIVE: CASE EVENT DATE: 20170124
